FAERS Safety Report 22653623 (Version 1)
Quarter: 2023Q2

REPORT INFORMATION
  Report Type: Spontaneous
  Country: FR (occurrence: FR)
  Receive Date: 20230629
  Receipt Date: 20230629
  Transmission Date: 20230722
  Serious: Yes (Other)
  Sender: FDA-Public Use
  Company Number: FR-AFSSAPS-LL2023000997

PATIENT
  Age: 67 Year
  Sex: Female

DRUGS (2)
  1. TAMOXIFEN [Suspect]
     Active Substance: TAMOXIFEN
     Indication: Adenocarcinoma
     Dosage: UNK
     Route: 048
     Dates: start: 201512, end: 201812
  2. TAMOXIFEN [Suspect]
     Active Substance: TAMOXIFEN
     Dosage: UNK
     Route: 048
     Dates: start: 20230209, end: 20230327

REACTIONS (1)
  - Transient acantholytic dermatosis [Recovering/Resolving]

NARRATIVE: CASE EVENT DATE: 20230327
